FAERS Safety Report 7935742-4 (Version None)
Quarter: 2011Q4

REPORT INFORMATION
  Report Type: 
  Country: None (occurrence: None)
  Receive Date: 20111123
  Receipt Date: 20111116
  Transmission Date: 20120403
  Serious: Yes (Death, Life-Threatening, Other)
  Sender: FDA-Public Use
  Company Number: JP-JNJFOC-20110501282

PATIENT
  Sex: Female

DRUGS (9)
  1. MYSTAN [Concomitant]
     Indication: EPILEPSY
     Route: 048
  2. TOPIRAMATE [Suspect]
     Indication: EPILEPSY
     Route: 048
     Dates: start: 20101105, end: 20101119
  3. TOPIRAMATE [Suspect]
     Route: 048
     Dates: start: 20110204, end: 20110303
  4. TOPIRAMATE [Suspect]
     Route: 048
     Dates: start: 20110318, end: 20110331
  5. TOPIRAMATE [Suspect]
     Route: 048
     Dates: start: 20110304, end: 20110317
  6. TOPIRAMATE [Suspect]
     Route: 048
     Dates: start: 20101120, end: 20110113
  7. TOPIRAMATE [Suspect]
     Route: 048
     Dates: start: 20110114, end: 20110203
  8. VALPROIC ACID [Concomitant]
     Indication: EPILEPSY
     Route: 048
  9. TOPIRAMATE [Suspect]
     Route: 048
     Dates: start: 20101022, end: 20101104

REACTIONS (2)
  - LARGE INTESTINE CARCINOMA [None]
  - CANCER PAIN [None]
